FAERS Safety Report 6453188-5 (Version None)
Quarter: 2009Q4

REPORT INFORMATION
  Report Type: 
  Country: None (occurrence: None)
  Receive Date: 20091123
  Receipt Date: 20091123
  Transmission Date: 20100525
  Serious: Yes (Hospitalization)
  Sender: FDA-Public Use
  Company Number: None

PATIENT
  Sex: Female
  Weight: 79.1 kg

DRUGS (2)
  1. CISPLATIN [Suspect]
     Dosage: 945 MG
     Dates: start: 20091029
  2. TAXOL [Suspect]
     Dosage: 208 MG
     Dates: start: 20091029

REACTIONS (3)
  - HERPES SIMPLEX [None]
  - SEPSIS [None]
  - WHITE BLOOD CELLS URINE POSITIVE [None]
